FAERS Safety Report 15907419 (Version 3)
Quarter: 2019Q2

REPORT INFORMATION
  Report Type: Spontaneous
  Country: US (occurrence: US)
  Receive Date: 20190204
  Receipt Date: 20190402
  Transmission Date: 20190711
  Serious: Yes (Disabling)
  Sender: FDA-Public Use
  Company Number: US-OTSUKA-2019_002636

PATIENT
  Sex: Male

DRUGS (1)
  1. ABILIFY [Suspect]
     Active Substance: ARIPIPRAZOLE
     Indication: BIPOLAR DISORDER
     Dosage: 2MG{5MG, QD
     Route: 065
     Dates: start: 201103, end: 201406

REACTIONS (24)
  - Fear [Unknown]
  - Divorced [Unknown]
  - Shoplifting [Recovered/Resolved]
  - Impulse-control disorder [Unknown]
  - Gambling disorder [Recovered/Resolved]
  - Homeless [Unknown]
  - Physical disability [Unknown]
  - Theft [Recovered/Resolved]
  - Pain [Unknown]
  - Injury [Unknown]
  - Compulsive shopping [Recovered/Resolved]
  - Economic problem [Unknown]
  - Alcohol abuse [Unknown]
  - Loss of employment [Unknown]
  - Anxiety [Unknown]
  - Social problem [Unknown]
  - Personal relationship issue [Unknown]
  - Mental impairment [Unknown]
  - Obsessive-compulsive disorder [Recovered/Resolved]
  - Substance dependence [Unknown]
  - Anhedonia [Unknown]
  - Emotional distress [Unknown]
  - Eating disorder [Recovered/Resolved]
  - Condition aggravated [Recovered/Resolved]

NARRATIVE: CASE EVENT DATE: 201103
